FAERS Safety Report 7265919-5 (Version None)
Quarter: 2011Q1

REPORT INFORMATION
  Report Type: 
  Country: None (occurrence: None)
  Receive Date: 20110131
  Receipt Date: 20110124
  Transmission Date: 20110831
  Serious: Yes (Other)
  Sender: FDA-Public Use
  Company Number: B0696897A

PATIENT
  Sex: Female

DRUGS (2)
  1. ANTI-DEPRESSIVE MEDICATION [Concomitant]
  2. MALARONE [Suspect]
     Indication: MALARIA PROPHYLAXIS
     Route: 065

REACTIONS (2)
  - DRUG EXPOSURE DURING PREGNANCY [None]
  - ABORTION INDUCED [None]
